FAERS Safety Report 5776422-3 (Version None)
Quarter: 2008Q2

REPORT INFORMATION
  Report Type: 
  Country: None (occurrence: None)
  Receive Date: 20080612
  Receipt Date: 20080605
  Transmission Date: 20081010
  Serious: Yes (Other)
  Sender: FDA-Public Use
  Company Number: 2008SP010966

PATIENT
  Sex: Male

DRUGS (3)
  1. PEG-INTRON [Suspect]
     Indication: HEPATITIS C
     Dates: end: 20080101
  2. REBETOL [Suspect]
     Indication: HEPATITIS C
     Dates: end: 20080101
  3. PEGASYS [Concomitant]

REACTIONS (1)
  - HEPATITIS TOXIC [None]
